FAERS Safety Report 6052660-X (Version None)
Quarter: 2009Q1

REPORT INFORMATION
  Report Type: 
  Country: None (occurrence: None)
  Receive Date: 20090121
  Receipt Date: 20090106
  Transmission Date: 20090719
  Serious: Yes (Death)
  Sender: FDA-Public Use
  Company Number: PAR_02508_2009

PATIENT
  Age: 46 Year
  Sex: Male

DRUGS (4)
  1. AMLODIPINE [Suspect]
     Indication: HYPERTENSION
     Dosage: (AN EXTRA 10 MG DOSE ORAL)
     Route: 048
  2. DILTIAZEM [Suspect]
     Indication: HYPERTENSION
     Dosage: (AN EXTRA 240 MG DOSE ORAL)
     Route: 048
  3. LABETALOL 400 MG [Suspect]
     Indication: HYPERTENSION
     Dosage: (AN EXTRA 400 MG DOSE ORAL)
     Route: 048
  4. LORATADINE [Suspect]
     Indication: DRUG USE FOR UNKNOWN INDICATION
     Dosage: (DF ORAL)
     Route: 048

REACTIONS (2)
  - ACCIDENTAL POISONING [None]
  - MEDICATION ERROR [None]
